FAERS Safety Report 16085113 (Version 2)
Quarter: 2019Q1

REPORT INFORMATION
  Report Type: Spontaneous
  Country: IT (occurrence: IT)
  Receive Date: 20190318
  Receipt Date: 20190320
  Transmission Date: 20190418
  Serious: Yes (Other)
  Sender: FDA-Public Use
  Company Number: IT-PFIZER INC-2019114994

PATIENT
  Age: 13 Year
  Sex: Female

DRUGS (3)
  1. CISPLATIN. [Suspect]
     Active Substance: CISPLATIN
     Indication: OSTEOSARCOMA
     Dosage: 120 MG/M2, CYCLIC (TOTAL DOSE- 600 MG/M^2)
     Route: 013
  2. METHOTREXATE. [Suspect]
     Active Substance: METHOTREXATE
     Indication: OSTEOSARCOMA
     Dosage: UNK, CYCLIC (8 G/M^2, CUMULATIVE DOSE 40 G/M^2, HIGH-DOSE)
  3. DOXORUBICIN HCL [Suspect]
     Active Substance: DOXORUBICIN HYDROCHLORIDE
     Indication: OSTEOSARCOMA
     Dosage: 60 MG/M2, CYCLIC TOTAL DOSE 480 MG/M^2

REACTIONS (2)
  - Acute lymphocytic leukaemia [Recovered/Resolved]
  - Second primary malignancy [Recovered/Resolved]
